FAERS Safety Report 17316689 (Version 3)
Quarter: 2020Q1

REPORT INFORMATION
  Report Type: Report from Study
  Country: AR (occurrence: AR)
  Receive Date: 20200124
  Receipt Date: 20200212
  Transmission Date: 20200409
  Serious: Yes (Hospitalization)
  Sender: FDA-Public Use
  Company Number: NVSC2020AR016751

PATIENT
  Sex: Female

DRUGS (3)
  1. T4 MONTPELLIER [Concomitant]
     Indication: THYROID DISORDER
     Dosage: UNK
     Route: 065
  2. LEVOTHYROXINE. [Concomitant]
     Active Substance: LEVOTHYROXINE
     Indication: THYROID DISORDER
     Dosage: UNK
     Route: 065
  3. DIOVAN IC FCT [Suspect]
     Active Substance: VALSARTAN
     Indication: HYPERTENSION
     Dosage: 40 MG, QD (MORE THAN 10 YEARS AGO)
     Route: 065

REACTIONS (9)
  - Diabetes mellitus [Unknown]
  - Memory impairment [Unknown]
  - Haematoma [Recovered/Resolved]
  - Arterial disorder [Unknown]
  - Blood glucose increased [Unknown]
  - Anxiety [Unknown]
  - Diverticulum [Unknown]
  - Stress [Unknown]
  - Peripheral vascular disorder [Unknown]

NARRATIVE: CASE EVENT DATE: 2011
